FAERS Safety Report 25772901 (Version 1)
Quarter: 2025Q3

REPORT INFORMATION
  Report Type: Report from Study
  Country: CA (occurrence: CA)
  Receive Date: 20250908
  Receipt Date: 20250908
  Transmission Date: 20251021
  Serious: Yes (Other)
  Sender: TAKEDA
  Company Number: CA-TAKEDA-2025TUS077665

PATIENT
  Sex: Female

DRUGS (10)
  1. VEDOLIZUMAB [Suspect]
     Active Substance: VEDOLIZUMAB
     Indication: Colitis ulcerative
  2. Salofalk [Concomitant]
     Dosage: 4 GRAM, QD
     Dates: start: 2011
  3. PREDNISONE [Concomitant]
     Active Substance: PREDNISONE
  4. PANTOPRAZOLE [Concomitant]
     Active Substance: PANTOPRAZOLE
  5. OXYCODONE [Concomitant]
     Active Substance: OXYCODONE
  6. ASPIRIN [Concomitant]
     Active Substance: ASPIRIN
  7. FEBUXOSTAT [Concomitant]
     Active Substance: FEBUXOSTAT
  8. LEVETIRACETAM [Concomitant]
     Active Substance: LEVETIRACETAM
  9. QUETIAPINE [Concomitant]
     Active Substance: QUETIAPINE
  10. FESOTERODINE [Concomitant]
     Active Substance: FESOTERODINE

REACTIONS (7)
  - Kidney contusion [Unknown]
  - Illness [Unknown]
  - Faecal volume increased [Unknown]
  - Pain [Unknown]
  - Decreased appetite [Unknown]
  - Abdominal distension [Unknown]
  - Back pain [Unknown]
